FAERS Safety Report 10440119 (Version 2)
Quarter: 2014Q3

REPORT INFORMATION
  Report Type: Spontaneous
  Country: US (occurrence: US)
  Receive Date: 20140908
  Receipt Date: 20140908
  Transmission Date: 20150326
  Serious: Yes (Hospitalization)
  Sender: FDA-Public Use
  Company Number: US-BRISTOL-MYERS SQUIBB COMPANY-19416122

PATIENT
  Age: 29 Year
  Sex: Male

DRUGS (3)
  1. PROLIXIN [Suspect]
     Active Substance: FLUPHENAZINE HYDROCHLORIDE
  2. ABILIFY [Suspect]
     Active Substance: ARIPIPRAZOLE
     Route: 048
  3. ABILIFY MAINTENA [Suspect]
     Active Substance: ARIPIPRAZOLE
     Indication: SCHIZOPHRENIA
     Dosage: DEPOT
     Route: 030
     Dates: start: 2013

REACTIONS (3)
  - Restlessness [Not Recovered/Not Resolved]
  - Adverse event [Unknown]
  - Trismus [Not Recovered/Not Resolved]
